FAERS Safety Report 9701509 (Version 2)
Quarter: 2014Q1

REPORT INFORMATION
  Report Type: Spontaneous
  Country: US (occurrence: US)
  Receive Date: 20131121
  Receipt Date: 20140207
  Transmission Date: 20141002
  Serious: No
  Sender: FDA-Public Use
  Company Number: US-009507513-1311USA008622

PATIENT
  Sex: Female
  Weight: 99.77 kg

DRUGS (1)
  1. OXYTROL FOR WOMEN [Suspect]
     Indication: MICTURITION URGENCY
     Dosage: UNK, UNKNOWN
     Route: 062
     Dates: start: 20131020, end: 20131028

REACTIONS (3)
  - Skin odour abnormal [Recovered/Resolved]
  - Therapeutic response decreased [Unknown]
  - Product quality issue [Unknown]
